FAERS Safety Report 14026491 (Version 5)
Quarter: 2017Q4

REPORT INFORMATION
  Report Type: Spontaneous
  Country: US (occurrence: US)
  Receive Date: 20170929
  Receipt Date: 20171128
  Transmission Date: 20180321
  Serious: No
  Sender: FDA-Public Use
  Company Number: US-ACTELION-A-US2017-160047

PATIENT
  Age: 60 Year
  Sex: Female

DRUGS (1)
  1. OPSUMIT [Suspect]
     Active Substance: MACITENTAN
     Indication: PULMONARY ARTERIAL HYPERTENSION
     Dosage: 10 MG, UNK
     Route: 048
     Dates: start: 20170829

REACTIONS (10)
  - Pyrexia [Unknown]
  - Sinus disorder [Unknown]
  - Cough [Unknown]
  - Upper respiratory tract congestion [Unknown]
  - Nasal congestion [Unknown]
  - Fluid retention [Unknown]
  - Multiple allergies [Unknown]
  - Oedema [Unknown]
  - Throat irritation [Unknown]
  - Weight increased [Unknown]

NARRATIVE: CASE EVENT DATE: 201710
